FAERS Safety Report 9033925 (Version 1)
Quarter: 2013Q1

REPORT INFORMATION
  Report Type: Spontaneous
  Country: US (occurrence: US)
  Receive Date: 20130128
  Receipt Date: 20130128
  Transmission Date: 20140127
  Serious: Yes (Other)
  Sender: FDA-Public Use
  Company Number: US-AMGEN-USASP2012066510

PATIENT
  Sex: Female

DRUGS (2)
  1. ENBREL [Suspect]
     Indication: RHEUMATOID ARTHRITIS
     Dosage: 25 MG, UNK,  TWO INJECTIONS GIVEN SAME DAY
     Dates: start: 2006
  2. METHOTREXATE [Concomitant]
     Dosage: 2.5 MG, QWK, BEFORE GOES TO BED
     Route: 048

REACTIONS (7)
  - Angioplasty [Recovered/Resolved]
  - Loss of consciousness [Recovered/Resolved]
  - Visual impairment [Not Recovered/Not Resolved]
  - Head injury [Recovered/Resolved]
  - Abdominal discomfort [Not Recovered/Not Resolved]
  - Injection site extravasation [Not Recovered/Not Resolved]
  - Injection site haemorrhage [Not Recovered/Not Resolved]
